FAERS Safety Report 6437977-9 (Version None)
Quarter: 2009Q4

REPORT INFORMATION
  Report Type: 
  Country: None (occurrence: None)
  Receive Date: 20091112
  Receipt Date: 20091104
  Transmission Date: 20100525
  Serious: Yes (Other)
  Sender: FDA-Public Use
  Company Number: US-JNJCH-2009029040

PATIENT
  Age: 27 Year
  Sex: Male
  Weight: 108.9 kg

DRUGS (1)
  1. BENGAY ULTRA STRENGTH PATCH [Suspect]
     Indication: MYALGIA
     Dosage: TEXT:ONE PATCH ONCE
     Route: 061
     Dates: start: 20091103, end: 20091103

REACTIONS (1)
  - APPLICATION SITE BURN [None]
